FAERS Safety Report 16742812 (Version 1)
Quarter: 2019Q3

REPORT INFORMATION
  Report Type: Spontaneous
  Country: US (occurrence: US)
  Receive Date: 20190826
  Receipt Date: 20190826
  Transmission Date: 20191005
  Serious: No
  Sender: FDA-Public Use
  Company Number: US-TEVA-2019-US-1098695

PATIENT
  Sex: Male

DRUGS (2)
  1. ARMODAFINIL TEVA [Suspect]
     Active Substance: ARMODAFINIL
     Indication: HYPERSOMNIA
     Dosage: OVAL, WHITE TO OFF-WHITE/C/215
     Route: 065
  2. ARMODAFINIL TEVA [Suspect]
     Active Substance: ARMODAFINIL
     Indication: FATIGUE

REACTIONS (1)
  - Drug ineffective [Unknown]

NARRATIVE: CASE EVENT DATE: 201902
